FAERS Safety Report 16132182 (Version 1)
Quarter: 2019Q1

REPORT INFORMATION
  Report Type: Spontaneous
  Country: US (occurrence: US)
  Receive Date: 20190329
  Receipt Date: 20190329
  Transmission Date: 20190418
  Serious: Yes (Other)
  Sender: FDA-Public Use
  Company Number: US-SA-2019SA085950

PATIENT
  Age: 60 Year
  Sex: Male

DRUGS (5)
  1. MYRBETRIQ [Suspect]
     Active Substance: MIRABEGRON
     Indication: PRODUCT USED FOR UNKNOWN INDICATION
  2. PRAZOSIN. [Interacting]
     Active Substance: PRAZOSIN
     Indication: NIGHTMARE
     Dosage: UNK UNK, UNK
     Route: 065
  3. PRAZOSIN. [Interacting]
     Active Substance: PRAZOSIN
     Indication: SLEEP DISORDER
  4. TAMSULOSIN HYDROCHLORIDE. [Suspect]
     Active Substance: TAMSULOSIN HYDROCHLORIDE
     Indication: PRODUCT USED FOR UNKNOWN INDICATION
     Dosage: UNK
  5. TAMSULOSIN HYDROCHLORIDE. [Interacting]
     Active Substance: TAMSULOSIN HYDROCHLORIDE
     Dosage: UNK, UNK
     Route: 065

REACTIONS (14)
  - Asthenia [Unknown]
  - Glaucoma [Unknown]
  - Musculoskeletal pain [Unknown]
  - Pain [Unknown]
  - Prostatic disorder [Unknown]
  - Urinary tract disorder [Unknown]
  - Sleep deficit [Unknown]
  - Arthralgia [Unknown]
  - Drug interaction [Unknown]
  - Dyspnoea [Unknown]
  - Anxiety [Unknown]
  - Hypotension [Unknown]
  - Arthropathy [Unknown]
  - Sinus headache [Unknown]
